FAERS Safety Report 10605515 (Version 1)
Quarter: 2014Q4

REPORT INFORMATION
  Report Type: Spontaneous
  Country: US (occurrence: US)
  Receive Date: 20141124
  Receipt Date: 20141124
  Transmission Date: 20150529
  Serious: No
  Sender: FDA-Public Use
  Company Number: US-SA-2014SA148186

PATIENT
  Age: 68 Year
  Sex: Female

DRUGS (2)
  1. RENVELA [Suspect]
     Active Substance: SEVELAMER CARBONATE
     Route: 048
  2. SENSIPAR [Concomitant]
     Active Substance: CINACALCET HYDROCHLORIDE

REACTIONS (2)
  - Nausea [Unknown]
  - Vomiting [Unknown]
